FAERS Safety Report 8836982 (Version 2)
Quarter: 2012Q4

REPORT INFORMATION
  Report Type: 
  Country: US (occurrence: US)
  Receive Date: 20121012
  Receipt Date: 20121129
  Transmission Date: 20130627
  Serious: Yes (Disabling)
  Sender: FDA-Public Use
  Company Number: US-TEVA-363113USA

PATIENT
  Sex: Female

DRUGS (1)
  1. COPAXONE [Suspect]

REACTIONS (10)
  - Dermatitis contact [Unknown]
  - Skin infection [Unknown]
  - Haemorrhage [Unknown]
  - Pruritus [Unknown]
  - Injection site pain [Unknown]
  - Injection site discomfort [Unknown]
  - Burning sensation [Unknown]
  - Activities of daily living impaired [Unknown]
  - Skin irritation [Unknown]
  - Sleep disorder [Unknown]
